FAERS Safety Report 8282226-2 (Version None)
Quarter: 2012Q2

REPORT INFORMATION
  Report Type: 
  Country: None (occurrence: None)
  Receive Date: 20120413
  Receipt Date: 20120404
  Transmission Date: 20120825
  Serious: Yes (Death)
  Sender: FDA-Public Use
  Company Number: US-PFIZER INC-2011311430

PATIENT
  Age: 54 Year
  Sex: Female

DRUGS (4)
  1. AMPHETAMINES [Suspect]
  2. DIPHENHYDRAMINE HCL [Suspect]
  3. OXYCODONE HCL [Suspect]
     Route: 048
  4. METHAMPHETAMINE [Suspect]

REACTIONS (3)
  - CARDIAC ARREST [None]
  - RESPIRATORY ARREST [None]
  - DEATH [None]
